FAERS Safety Report 5846012-2 (Version None)
Quarter: 2008Q3

REPORT INFORMATION
  Report Type: 
  Country: None (occurrence: None)
  Receive Date: 20080814
  Receipt Date: 20080806
  Transmission Date: 20090109
  Serious: Yes (Life-Threatening, Hospitalization)
  Sender: FDA-Public Use
  Company Number: BE-PFIZER INC-2004217510BE

PATIENT
  Sex: Female

DRUGS (6)
  1. SU-011,248 [Suspect]
     Indication: GASTROINTESTINAL STROMAL TUMOUR
     Dosage: DAILY DOSE:50MG
     Route: 048
     Dates: start: 20040504, end: 20040601
  2. PARIET [Concomitant]
  3. PARACETAMOL [Concomitant]
  4. BUPRENORPHINE HCL [Concomitant]
  5. LACTULOSE [Concomitant]
  6. KALIUM [Concomitant]

REACTIONS (5)
  - DEPRESSED LEVEL OF CONSCIOUSNESS [None]
  - HEPATIC FUNCTION ABNORMAL [None]
  - HYPERAMMONAEMIA [None]
  - SOMNOLENCE [None]
  - THROMBOCYTOPENIA [None]
